FAERS Safety Report 18242474 (Version 1)
Quarter: 2020Q3

REPORT INFORMATION
  Report Type: Spontaneous
  Country: US (occurrence: US)
  Receive Date: 20200908
  Receipt Date: 20200908
  Transmission Date: 20201103
  Serious: No
  Sender: FDA-Public Use
  Company Number: None

PATIENT
  Age: 16 Year
  Sex: Female
  Weight: 88.9 kg

DRUGS (1)
  1. FREMANEZUMAB?VFRM (FREMANEZUMAB?VFRM?225MG/1.5ML [Suspect]
     Active Substance: FREMANEZUMAB-VFRM
     Dosage: ?          OTHER DOSE:225MG/1.5ML;?
     Route: 058
     Dates: start: 20200901

REACTIONS (2)
  - Injection site pruritus [None]
  - Injection site rash [None]

NARRATIVE: CASE EVENT DATE: 20200901
